FAERS Safety Report 25130240 (Version 1)
Quarter: 2025Q1

REPORT INFORMATION
  Report Type: Spontaneous
  Country: US (occurrence: US)
  Receive Date: 20250327
  Receipt Date: 20250327
  Transmission Date: 20250408
  Serious: No
  Sender: ESPERION THERAPEUTICS
  Company Number: US-ESPERIONTHERAPEUTICS-2024USA00570

PATIENT
  Age: 63 Year
  Sex: Female
  Weight: 52.154 kg

DRUGS (2)
  1. NEXLIZET [Suspect]
     Active Substance: BEMPEDOIC ACID\EZETIMIBE
     Indication: Hyperlipidaemia
     Dosage: 1 DAILY
     Route: 048
     Dates: start: 202401, end: 20240415
  2. LEVOTHYROXINE [Concomitant]
     Active Substance: LEVOTHYROXINE
     Indication: Product used for unknown indication
     Route: 065

REACTIONS (2)
  - Pain [Not Recovered/Not Resolved]
  - Tendon injury [Not Recovered/Not Resolved]

NARRATIVE: CASE EVENT DATE: 20240301
